FAERS Safety Report 4309666-8 (Version None)
Quarter: 2004Q1

REPORT INFORMATION
  Report Type: 
  Country: None (occurrence: None)
  Receive Date: 20040301
  Receipt Date: 20040217
  Transmission Date: 20041129
  Serious: Yes (Death, Hospitalization)
  Sender: FDA-Public Use
  Company Number: CA-SHR-04-020311

PATIENT
  Age: 45 Year
  Sex: Male

DRUGS (4)
  1. BETASERON [Suspect]
     Indication: MULTIPLE SCLEROSIS
     Dosage: 8 MIU, EVERY 2D, SUBCUTANEOUS
     Route: 058
     Dates: start: 20010528, end: 20040203
  2. PREDNISONE [Concomitant]
  3. RANITIDINE [Concomitant]
  4. DILANTIN [Concomitant]

REACTIONS (4)
  - LUNG NEOPLASM MALIGNANT [None]
  - PERICARDIAL EFFUSION [None]
  - PNEUMONIA [None]
  - THROMBOSIS [None]
